FAERS Safety Report 24577315 (Version 2)
Quarter: 2024Q4

REPORT INFORMATION
  Report Type: Report from Study
  Country: US (occurrence: US)
  Receive Date: 20241104
  Receipt Date: 20241212
  Transmission Date: 20250115
  Serious: Yes (Hospitalization, Other)
  Sender: ALNYLAM PHARMACEUTICALS
  Company Number: US-ALNYLAM PHARMACEUTICALS, INC.-ALN-2024-006094

PATIENT

DRUGS (1)
  1. OXLUMO [Suspect]
     Active Substance: LUMASIRAN
     Indication: Primary hyperoxaluria
     Dosage: 81.6 MILLIGRAM, MONTHLY (ONCE EVERY 30 DAYS)
     Route: 058
     Dates: start: 20240827, end: 20240827

REACTIONS (4)
  - Liver transplant [Unknown]
  - Renal transplant [Unknown]
  - Ureteral stent insertion [Unknown]
  - Intentional dose omission [Unknown]

NARRATIVE: CASE EVENT DATE: 20241014
